FAERS Safety Report 18312547 (Version 1)
Quarter: 2020Q3

REPORT INFORMATION
  Report Type: Spontaneous
  Country: US (occurrence: US)
  Receive Date: 20200925
  Receipt Date: 20200925
  Transmission Date: 20201103
  Serious: Yes (Hospitalization, Disabling, Other)
  Sender: FDA-Public Use
  Company Number: US-AKRON, INC.-2091153

PATIENT
  Age: 63 Year
  Sex: Female

DRUGS (1)
  1. ZOSTRIX FOOT PAIN RELIEF MAXIMUM STRENGTH [Suspect]
     Active Substance: CAPSAICIN
     Indication: DIABETES MELLITUS
     Route: 061

REACTIONS (14)
  - Erythema [Recovered/Resolved]
  - Localised infection [Recovered/Resolved]
  - Foot amputation [Recovered/Resolved]
  - Impaired work ability [Not Recovered/Not Resolved]
  - Diarrhoea [Recovered/Resolved]
  - Burning sensation [Recovered/Resolved]
  - Off label use [Recovered/Resolved]
  - Cellulitis [Recovered/Resolved]
  - Blister [Recovered/Resolved]
  - Chills [Recovered/Resolved]
  - Pain in extremity [Recovered/Resolved]
  - Acute kidney injury [Unknown]
  - Peripheral swelling [Recovered/Resolved]
  - Pyrexia [Recovered/Resolved]
